FAERS Safety Report 5011793-7 (Version None)
Quarter: 2006Q2

REPORT INFORMATION
  Report Type: 
  Country: None (occurrence: None)
  Receive Date: 20060524
  Receipt Date: 20060524
  Transmission Date: 20061013
  Serious: Yes (Hospitalization)
  Sender: FDA-Public Use
  Company Number: None

PATIENT
  Age: 60 Year
  Sex: Male
  Weight: 105 kg

DRUGS (6)
  1. FOSINOPRIL SODIUM [Suspect]
     Indication: HYPERTENSION
     Dosage: 10 MG PO DAILY
     Route: 048
     Dates: start: 20060124, end: 20060323
  2. PIROXICAM [Suspect]
     Indication: BACK PAIN
     Dosage: 10 MG PO BID PM
     Route: 048
     Dates: start: 20040107, end: 20060323
  3. PIROXICAM [Suspect]
     Indication: NECK PAIN
     Dosage: 10 MG PO BID PM
     Route: 048
     Dates: start: 20040107, end: 20060323
  4. ASPIRIN [Concomitant]
  5. HYDROCHLOROTHIAZIDE [Concomitant]
  6. IBU [Concomitant]

REACTIONS (4)
  - ARTHRALGIA [None]
  - GOUT [None]
  - HYPOTENSION [None]
  - RENAL FAILURE ACUTE [None]
